FAERS Safety Report 15680139 (Version 2)
Quarter: 2018Q4

REPORT INFORMATION
  Report Type: Spontaneous
  Country: TR (occurrence: TR)
  Receive Date: 20181203
  Receipt Date: 20181214
  Transmission Date: 20190205
  Serious: Yes (Hospitalization, Other)
  Sender: FDA-Public Use
  Company Number: TR-ALEMBIC PHARMACUETICALS LIMITED-2018SCAL000885

PATIENT

DRUGS (1)
  1. RIVASTIGMINE TARTARATE [Suspect]
     Active Substance: RIVASTIGMINE TARTRATE
     Indication: PRODUCT USED FOR UNKNOWN INDICATION
     Dosage: 12 MG, UNK

REACTIONS (11)
  - Neutrophilia [Unknown]
  - Hyporesponsive to stimuli [Recovering/Resolving]
  - Somnolence [Recovering/Resolving]
  - Asthenia [Recovering/Resolving]
  - Leukocytosis [Unknown]
  - Hypotonia [Recovering/Resolving]
  - Cholinergic syndrome [Recovering/Resolving]
  - Coma scale abnormal [None]
  - Hyporeflexia [Recovering/Resolving]
  - Toxicity to various agents [Recovering/Resolving]
  - Hyperglycaemia [Recovering/Resolving]
